FAERS Safety Report 17509230 (Version 1)
Quarter: 2020Q1

REPORT INFORMATION
  Report Type: Report from Study
  Country: IT (occurrence: IT)
  Receive Date: 20200306
  Receipt Date: 20200306
  Transmission Date: 20200409
  Serious: Yes (Death, Other)
  Sender: FDA-Public Use
  Company Number: IT-PFIZER INC-2020096544

PATIENT

DRUGS (9)
  1. PROCARBAZINE [Suspect]
     Active Substance: PROCARBAZINE
     Indication: PLASMA CELL MYELOMA
     Dosage: 100 MG/M2, CYCLIC, (DAYS 8-14,EVERY 28 DAYS)
     Route: 048
  2. BLEOMYCIN [Suspect]
     Active Substance: BLEOMYCIN SULFATE
     Indication: PLASMA CELL MYELOMA
     Dosage: 10 MG/M2, CYCLIC (DAY 15,EVERY 28 DAYS)
     Route: 042
  3. VINCRISTINE SULFATE. [Suspect]
     Active Substance: VINCRISTINE SULFATE
     Indication: PLASMA CELL MYELOMA
     Dosage: 1.4 MG/M2, CYCLIC, (DAY 8,EVERY 28 DAYS)
     Route: 042
  4. LOMUSTINE. [Suspect]
     Active Substance: LOMUSTINE
     Indication: PLASMA CELL MYELOMA
     Dosage: 6 MG/M2, CYCLIC, (DAY 1,EVERY 28 DAYS)
     Route: 048
  5. PREDNISONE. [Suspect]
     Active Substance: PREDNISONE
     Indication: PLASMA CELL MYELOMA
     Dosage: 40 MG/M2, CYCLIC, (DAYS 1-14,EVERY 28 DAYS)
     Route: 048
  6. VINDESINE SULFATE [Suspect]
     Active Substance: VINDESINE SULFATE
     Indication: PLASMA CELL MYELOMA
     Dosage: 3 MG/M2, CYCLIC, (DAY 1,EVERY 28 DAYS)
     Route: 042
  7. VINBLASTINE [Suspect]
     Active Substance: VINBLASTINE
     Indication: PLASMA CELL MYELOMA
     Dosage: 6 MG/M2, CYCLIC (DAY 15,EVERY 28 DAYS)
     Route: 042
  8. EPIRUBICIN HCL [Suspect]
     Active Substance: EPIRUBICIN HYDROCHLORIDE
     Indication: PLASMA CELL MYELOMA
     Dosage: 40 MG/M2, CYCLIC, (DAY 8,EVERY 28 DAYS)
     Route: 042
  9. MELPHALAN. [Suspect]
     Active Substance: MELPHALAN
     Indication: PLASMA CELL MYELOMA
     Dosage: 6 MG/M2, CYCLIC, (DAYS 1-3,EVERY 28 DAYS)
     Route: 048

REACTIONS (2)
  - Sepsis [Fatal]
  - Neutropenia [Unknown]
